FAERS Safety Report 6388953-6 (Version None)
Quarter: 2009Q4

REPORT INFORMATION
  Report Type: 
  Country: None (occurrence: None)
  Receive Date: 20091001
  Receipt Date: 20090922
  Transmission Date: 20100525
  Serious: Yes (Other)
  Sender: FDA-Public Use
  Company Number: ADR29092009

PATIENT
  Age: 81 Year
  Sex: Male

DRUGS (10)
  1. RAMIPRIL [Suspect]
     Dosage: 5MG/1/1 DAYS
  2. ATENOLOL [Concomitant]
  3. CLOPIDOGREL [Concomitant]
  4. DEXTROPROPOXYPHENE [Concomitant]
  5. NAPSILATE [Concomitant]
  6. FUROSEMIDE [Concomitant]
  7. LAMOTRIGINE [Concomitant]
  8. LEVETIRACETAM [Concomitant]
  9. PARACETAMOL [Concomitant]
  10. PRAVASTATIN [Concomitant]

REACTIONS (2)
  - ANGIOEDEMA [None]
  - LICHEN PLANUS [None]
